FAERS Safety Report 23703784 (Version 1)
Quarter: 2024Q2

REPORT INFORMATION
  Report Type: Spontaneous
  Country: DE (occurrence: DE)
  Receive Date: 20240403
  Receipt Date: 20240403
  Transmission Date: 20240716
  Serious: Yes (Other)
  Sender: FDA-Public Use
  Company Number: None

PATIENT
  Sex: Female

DRUGS (2)
  1. METHOTREXATE SODIUM [Suspect]
     Active Substance: METHOTREXATE SODIUM
     Indication: Psoriasis
     Dosage: 10 MG, WEEKLY
     Route: 058
  2. INEBILIZUMAB [Suspect]
     Active Substance: INEBILIZUMAB
     Indication: Neuromyelitis optica spectrum disorder
     Dosage: 300 MG, FREQ: 6 MO
     Route: 042
     Dates: start: 202211, end: 202301

REACTIONS (3)
  - Lymphopenia [Recovered/Resolved]
  - CD4 lymphocytes decreased [Recovered/Resolved]
  - T-lymphocyte count decreased [Recovered/Resolved]
